FAERS Safety Report 23062640 (Version 3)
Quarter: 2024Q1

REPORT INFORMATION
  Report Type: Other
  Country: ES (occurrence: None)
  Receive Date: 20231013
  Receipt Date: 20240126
  Transmission Date: 20240409
  Serious: Yes (Life-Threatening, Hospitalization)
  Sender: FDA-Public Use
  Company Number: ES-ROCHE-3402262

PATIENT
  Age: 67 Year
  Sex: Male
  Weight: 70 kg

DRUGS (31)
  1. ATEZOLIZUMAB [Suspect]
     Active Substance: ATEZOLIZUMAB
     Indication: Non-small cell lung cancer metastatic
     Dosage: START DATE OF MOST RECENT DOSE OF STUDY DRUG PRIOR TO AE AND SAE: 18/JUL/2023 (1200MG), 22/AUG/2023
     Route: 041
     Dates: start: 20230627
  2. TRAMADOL [Concomitant]
     Active Substance: TRAMADOL\TRAMADOL HYDROCHLORIDE
  3. PREGABALIN [Concomitant]
     Active Substance: PREGABALIN
  4. TAMSULOSIN HYDROCHLORIDE [Concomitant]
     Active Substance: TAMSULOSIN HYDROCHLORIDE
  5. PRAMIPEXOLE [Concomitant]
     Active Substance: PRAMIPEXOLE\PRAMIPEXOLE DIHYDROCHLORIDE
  6. DALTEPARINA [Concomitant]
     Dates: start: 20230802
  7. DEFLAZACORT [Concomitant]
     Active Substance: DEFLAZACORT
     Dates: start: 20230802, end: 20230812
  8. OMEPRAZOLE [Concomitant]
     Active Substance: OMEPRAZOLE
     Dates: start: 20230802, end: 20230812
  9. CEFIXIME [Concomitant]
     Active Substance: CEFIXIME
     Dates: start: 20230710, end: 20230720
  10. AZITHROMYCIN DIHYDRATE [Concomitant]
     Active Substance: AZITHROMYCIN DIHYDRATE
     Dates: start: 20230710, end: 20230720
  11. AZITHROMYCIN DIHYDRATE [Concomitant]
     Active Substance: AZITHROMYCIN DIHYDRATE
     Dates: start: 20230723, end: 20230726
  12. AZITHROMYCIN DIHYDRATE [Concomitant]
     Active Substance: AZITHROMYCIN DIHYDRATE
     Dates: start: 20231107, end: 20231114
  13. ACETAMINOPHEN [Concomitant]
     Active Substance: ACETAMINOPHEN
     Dates: start: 20230710, end: 20230730
  14. ACETAMINOPHEN [Concomitant]
     Active Substance: ACETAMINOPHEN
     Dates: start: 20230918, end: 20230922
  15. LEVOFLOXACIN [Concomitant]
     Active Substance: LEVOFLOXACIN
     Dates: start: 20230723, end: 20230729
  16. SYMBICORT [Concomitant]
     Active Substance: BUDESONIDE\FORMOTEROL FUMARATE DIHYDRATE
     Dates: start: 20230723, end: 20230730
  17. PREDNISONE [Concomitant]
     Active Substance: PREDNISONE
     Dates: start: 20230827, end: 20230903
  18. PREDNISONE [Concomitant]
     Active Substance: PREDNISONE
     Dates: start: 20230918, end: 20230924
  19. AMOXICILLIN [Concomitant]
     Active Substance: AMOXICILLIN
     Dates: start: 20230918
  20. ACIDO CLAVULANICO [Concomitant]
     Dates: start: 20230918
  21. ATROVENT [Concomitant]
     Active Substance: IPRATROPIUM BROMIDE
     Dates: start: 20230918, end: 20230922
  22. ALBUTEROL [Concomitant]
     Active Substance: ALBUTEROL
     Dates: start: 20230918, end: 20230922
  23. FENTANYL [Concomitant]
     Active Substance: FENTANYL\FENTANYL CITRATE
     Dates: start: 20230918, end: 20230922
  24. MESNA [Concomitant]
     Active Substance: MESNA
     Dates: start: 20230918, end: 20230922
  25. MEROPENEM [Concomitant]
     Active Substance: MEROPENEM
     Dates: start: 20231119, end: 20231126
  26. VANCOMYCIN [Concomitant]
     Active Substance: VANCOMYCIN
     Dates: start: 20231119, end: 20231126
  27. PIPERACILLIN [Concomitant]
     Active Substance: PIPERACILLIN
     Dates: start: 20231119, end: 20231126
  28. TAZOBACTAM [Concomitant]
     Active Substance: TAZOBACTAM
     Dates: start: 20231119, end: 20231126
  29. FOSTER [Concomitant]
     Active Substance: BECLOMETHASONE\FORMOTEROL
     Dates: start: 2023
  30. CARBOPLATIN [Concomitant]
     Active Substance: CARBOPLATIN
     Dates: start: 20231013, end: 20231013
  31. PEMETREXED [Concomitant]
     Active Substance: PEMETREXED
     Dates: start: 20231013, end: 20231013

REACTIONS (7)
  - Pulmonary embolism [Recovered/Resolved]
  - Pneumonia [Recovered/Resolved]
  - Respiratory failure [Recovering/Resolving]
  - Respiratory tract infection [Recovered/Resolved]
  - Pain [Recovering/Resolving]
  - Asthenia [Recovering/Resolving]
  - Pneumonia [Recovered/Resolved]

NARRATIVE: CASE EVENT DATE: 20230627
